FAERS Safety Report 6228260-5 (Version None)
Quarter: 2009Q2

REPORT INFORMATION
  Report Type: 
  Country: None (occurrence: None)
  Receive Date: 20090610
  Receipt Date: 20090610
  Transmission Date: 20091009
  Serious: No
  Sender: FDA-Public Use
  Company Number: None

PATIENT
  Age: 41 Year
  Sex: Male
  Weight: 100.6985 kg

DRUGS (1)
  1. CYMBALTA [Suspect]
     Indication: FIBROMYALGIA
     Dosage: 60MG ONCE DAILY ORAL
     Route: 048
     Dates: start: 20090319, end: 20090501

REACTIONS (3)
  - DYSKINESIA [None]
  - MUSCLE SPASMS [None]
  - MYALGIA [None]
